FAERS Safety Report 5267197-5 (Version None)
Quarter: 2007Q1

REPORT INFORMATION
  Report Type: 
  Country: None (occurrence: None)
  Receive Date: 20070316
  Receipt Date: 20070312
  Transmission Date: 20070707
  Serious: Yes (Other)
  Sender: FDA-Public Use
  Company Number: IT-SANOFI-SYNTHELABO-A06200700104

PATIENT
  Age: 27 Year
  Sex: Male

DRUGS (1)
  1. ZOLPIDEM TARTRATE [Suspect]
     Indication: INITIAL INSOMNIA
     Route: 048

REACTIONS (3)
  - DISSOCIATIVE DISORDER [None]
  - DRUG DEPENDENCE [None]
  - GRAND MAL CONVULSION [None]
